FAERS Safety Report 5372581-5 (Version None)
Quarter: 2007Q2

REPORT INFORMATION
  Report Type: 
  Country: None (occurrence: None)
  Receive Date: 20070627
  Receipt Date: 20070613
  Transmission Date: 20071010
  Serious: Yes (Hospitalization)
  Sender: FDA-Public Use
  Company Number: DE-SHR-DE-2007-022458

PATIENT
  Age: 18 Year
  Sex: Male

DRUGS (1)
  1. BETASERON [Suspect]
     Dosage: UNK, UNK
     Route: 058
     Dates: start: 20070301

REACTIONS (1)
  - DYSGEUSIA [None]
